FAERS Safety Report 8673343 (Version 3)
Quarter: 2013Q4

REPORT INFORMATION
  Report Type: Spontaneous
  Country: BE (occurrence: BE)
  Receive Date: 20120713
  Receipt Date: 20131101
  Transmission Date: 20140711
  Serious: Yes (Life-Threatening)
  Sender: FDA-Public Use
  Company Number: BE-009507513-2012SP036330

PATIENT
  Age: 46 Year
  Sex: Female

DRUGS (3)
  1. ESMERON [Suspect]
     Indication: NEUROMUSCULAR BLOCKING THERAPY
     Dosage: UNK UNK, UNKNOWN
  2. SUFENTANIL [Concomitant]
     Dosage: UNK UNK, UNKNOWN
     Route: 065
  3. CRIXOFOL [Concomitant]
     Dosage: UNK UNK, UNKNOWN
     Route: 065

REACTIONS (4)
  - Dyspnoea [Unknown]
  - Angioedema [Unknown]
  - Oxygen saturation decreased [Unknown]
  - Type I hypersensitivity [Unknown]
